FAERS Safety Report 23938661 (Version 1)
Quarter: 2024Q2

REPORT INFORMATION
  Report Type: Spontaneous
  Country: ES (occurrence: ES)
  Receive Date: 20240604
  Receipt Date: 20240604
  Transmission Date: 20240716
  Serious: Yes (Hospitalization)
  Sender: FDA-Public Use
  Company Number: ES-TEVA-VS-3205602

PATIENT
  Age: 53 Year
  Sex: Male

DRUGS (1)
  1. CYCLOSPORINE [Suspect]
     Active Substance: CYCLOSPORINE
     Indication: Dermatitis exfoliative generalised
     Route: 065

REACTIONS (5)
  - Drug ineffective [Unknown]
  - Toxicity to various agents [Unknown]
  - Skin lesion [Unknown]
  - Oliguria [Unknown]
  - Muscular weakness [Unknown]
